FAERS Safety Report 5970231-8 (Version None)
Quarter: 2008Q4

REPORT INFORMATION
  Report Type: 
  Country: None (occurrence: None)
  Receive Date: 20081126
  Receipt Date: 20081015
  Transmission Date: 20090506
  Serious: No
  Sender: FDA-Public Use
  Company Number: US-ABBOTT-08P-163-0482683-00

PATIENT
  Sex: Female

DRUGS (1)
  1. SIMCOR [Suspect]
     Indication: HYPERCHOLESTEROLAEMIA
     Dosage: 500MG/20MG, AT BEDTIME
     Route: 048
     Dates: start: 20080806

REACTIONS (3)
  - BURNING SENSATION [None]
  - FLUSHING [None]
  - MIGRAINE [None]
